FAERS Safety Report 7279877-0 (Version None)
Quarter: 2011Q1

REPORT INFORMATION
  Report Type: 
  Country: None (occurrence: None)
  Receive Date: 20110203
  Receipt Date: 20110203
  Transmission Date: 20110831
  Serious: Yes (Hospitalization)
  Sender: FDA-Public Use
  Company Number: None

PATIENT
  Age: 37 Year
  Sex: Male

DRUGS (2)
  1. TRAMADOL HCL [Suspect]
     Dosage: 50 MG PRN PO
     Route: 048
     Dates: start: 20090420, end: 20101228
  2. LORAZEPAM [Suspect]
     Dosage: 1 MG HS PO
     Route: 048
     Dates: start: 20100810, end: 20110112

REACTIONS (5)
  - REFUSAL OF TREATMENT BY PATIENT [None]
  - INCORRECT ROUTE OF DRUG ADMINISTRATION [None]
  - SUICIDE ATTEMPT [None]
  - MULTIPLE DRUG OVERDOSE [None]
  - WRONG TECHNIQUE IN DRUG USAGE PROCESS [None]
